FAERS Safety Report 16097549 (Version 4)
Quarter: 2019Q2

REPORT INFORMATION
  Report Type: Spontaneous
  Country: JP (occurrence: JP)
  Receive Date: 20190320
  Receipt Date: 20190430
  Transmission Date: 20190711
  Serious: Yes (Hospitalization, Other)
  Sender: FDA-Public Use
  Company Number: JP-DSJP-DSJ-2019-109538AA

PATIENT

DRUGS (15)
  1. OPALMON [Concomitant]
     Active Substance: LIMAPROST
     Dosage: 5 UG, BID
     Route: 048
  2. LYRICA [Concomitant]
     Active Substance: PREGABALIN
     Dosage: 25 MG, BID
     Route: 048
  3. LIXIANA OD TABLETS 60MG [Suspect]
     Active Substance: EDOXABAN TOSYLATE
     Indication: THROMBOSIS PROPHYLAXIS
     Dosage: 30 MG, QD
     Route: 048
     Dates: start: 20190210, end: 20190309
  4. TRAMAL [Concomitant]
     Active Substance: TRAMADOL
     Dosage: 50 MG, QID
     Route: 048
  5. POLLAKISU [Concomitant]
     Active Substance: OXYBUTYNIN CHLORIDE
     Dosage: UNK
     Route: 065
  6. CRAVIT [Concomitant]
     Active Substance: LEVOFLOXACIN
     Indication: URINARY TRACT INFECTION
     Dosage: UNK
     Route: 048
     Dates: start: 20190308
  7. REBAMIPIDE [Concomitant]
     Active Substance: REBAMIPIDE
     Dosage: 100 MG, TID
     Route: 048
  8. LANSOPRAZOLE. [Concomitant]
     Active Substance: LANSOPRAZOLE
     Dosage: UNK
     Route: 048
  9. LIMAPROST ALFADEX [Concomitant]
     Active Substance: LIMAPROST
     Dosage: UNK
     Dates: end: 20190306
  10. VITAMINS NOS [Concomitant]
     Active Substance: VITAMINS
     Dosage: UNK
     Route: 065
  11. GOREISAN                           /08015701/ [Concomitant]
     Active Substance: HERBALS
     Dosage: UNK
     Route: 065
  12. CALONAL [Concomitant]
     Active Substance: ACETAMINOPHEN
     Dosage: 200 MG, BID
     Route: 048
  13. LANIRAPID [Concomitant]
     Active Substance: METILDIGOXIN
     Dosage: UNK
     Route: 065
  14. NEUROTROPIN                        /06251301/ [Concomitant]
     Active Substance: ORYCTOLAGUS CUNICULUS SKIN
     Dosage: UNK
     Route: 065
  15. ALFACALCIDOL [Concomitant]
     Active Substance: ALFACALCIDOL
     Dosage: UNK
     Route: 065

REACTIONS (5)
  - Subdural hygroma [Recovering/Resolving]
  - Epilepsy [Recovering/Resolving]
  - Subdural haematoma [Recovering/Resolving]
  - Restlessness [Recovering/Resolving]
  - Urinary tract infection [Unknown]

NARRATIVE: CASE EVENT DATE: 20181218
